FAERS Safety Report 6371778-5 (Version None)
Quarter: 2009Q3

REPORT INFORMATION
  Report Type: 
  Country: None (occurrence: None)
  Receive Date: 20090918
  Receipt Date: 20090729
  Transmission Date: 20100115
  Serious: Yes (Hospitalization)
  Sender: FDA-Public Use
  Company Number: 6053386

PATIENT
  Age: 26 Year
  Sex: Female

DRUGS (1)
  1. EUTIROX (150, TABLET) (LEVOTHYROXINE SODIUM) [Suspect]
     Indication: CONGENITAL HYPOTHYROIDISM
     Dosage: 28 TABLETS 4.2 MG

REACTIONS (3)
  - DRUG TOXICITY [None]
  - INCORRECT DOSE ADMINISTERED [None]
  - SUICIDE ATTEMPT [None]
